FAERS Safety Report 5866952-8 (Version None)
Quarter: 2008Q3

REPORT INFORMATION
  Report Type: 
  Country: None (occurrence: None)
  Receive Date: 20080828
  Receipt Date: 20080828
  Transmission Date: 20090109
  Serious: Yes (Hospitalization)
  Sender: FDA-Public Use
  Company Number: None

PATIENT
  Age: 55 Year
  Sex: Male
  Weight: 88 kg

DRUGS (20)
  1. REMICADE [Suspect]
     Indication: PSORIATIC ARTHROPATHY
     Dosage: 5MG/KG ONE TIME IV
     Route: 042
     Dates: start: 20080518
  2. ISOSORBIDE MONONITRATE [Concomitant]
  3. ATORVASTATIN [Concomitant]
  4. ASPIRIN [Concomitant]
  5. PROBENACID [Concomitant]
  6. FOLIC ACID [Concomitant]
  7. ATENOLOL [Concomitant]
  8. CLOPIDOGREL [Concomitant]
  9. ALBUTEROL [Concomitant]
  10. ALLOPURINOL [Concomitant]
  11. FUROSEMIDE [Concomitant]
  12. QUINAPRIL [Concomitant]
  13. METFORMIN HCL [Concomitant]
  14. TRIAMCINOLONE [Concomitant]
  15. CALCIUM-VITAMIN D [Concomitant]
  16. FLUTICASONE-SALMETEROL [Concomitant]
  17. OMEPRAZOLE [Concomitant]
  18. DIPHENHYDRAMINE HCL [Concomitant]
  19. ACETAMINOPHEN [Concomitant]
  20. PREDNISONE TAB [Concomitant]

REACTIONS (6)
  - CONDITION AGGRAVATED [None]
  - LUNG ABSCESS [None]
  - PSORIASIS [None]
  - SERUM SICKNESS [None]
  - THERAPEUTIC RESPONSE DECREASED [None]
  - TOXIC EPIDERMAL NECROLYSIS [None]
